FAERS Safety Report 7121442-X (Version None)
Quarter: 2010Q4

REPORT INFORMATION
  Report Type: 
  Country: None (occurrence: None)
  Receive Date: 20101124
  Receipt Date: 20101112
  Transmission Date: 20110411
  Serious: Yes (Life-Threatening, Disabling)
  Sender: FDA-Public Use
  Company Number: JP-SANOFI-AVENTIS-2010SA060342

PATIENT
  Age: 34 Year
  Sex: Female
  Weight: 57 kg

DRUGS (8)
  1. ELPLAT [Suspect]
     Indication: COLON CANCER
     Route: 041
     Dates: start: 20100928, end: 20100928
  2. XELODA [Suspect]
     Indication: COLON CANCER
     Route: 048
     Dates: start: 20100928, end: 20100929
  3. AVASTIN [Suspect]
     Indication: COLON CANCER
     Route: 041
     Dates: start: 20100928, end: 20100928
  4. KYTRIL [Concomitant]
     Indication: PREMEDICATION
     Route: 041
     Dates: start: 20100928, end: 20100928
  5. DEXAMETHASONE SODIUM PHOSPHATE [Concomitant]
     Indication: PREMEDICATION
     Route: 041
     Dates: start: 20100928, end: 20100928
  6. CHLOR-TRIMETON [Concomitant]
     Indication: PREMEDICATION
     Route: 041
     Dates: start: 20100928, end: 20100928
  7. EMEND [Concomitant]
     Dosage: 125-80 MG
     Route: 048
     Dates: start: 20100928, end: 20100929
  8. ALBUMIN (HUMAN) [Concomitant]
     Indication: TRANSFUSION
     Route: 041
     Dates: start: 20101004, end: 20101006

REACTIONS (4)
  - DISSEMINATED INTRAVASCULAR COAGULATION [None]
  - HAEMOLYSIS [None]
  - LIVER DISORDER [None]
  - RENAL FAILURE ACUTE [None]
